FAERS Safety Report 9377579 (Version 3)
Quarter: 2013Q3

REPORT INFORMATION
  Report Type: Spontaneous
  Country: US (occurrence: US)
  Receive Date: 20130701
  Receipt Date: 20130823
  Transmission Date: 20140515
  Serious: Yes (Hospitalization, Other)
  Sender: FDA-Public Use
  Company Number: US-009507513-1306USA011867

PATIENT
  Age: 63 Year
  Sex: Female

DRUGS (4)
  1. PEG-INTRON [Suspect]
     Indication: HEPATITIS C
     Dosage: VIAL
     Dates: start: 20041001, end: 20050201
  2. PEG-INTRON [Suspect]
     Dosage: REDIPEN
     Dates: start: 20130620, end: 20130719
  3. REBETOL [Suspect]
     Indication: HEPATITIS C
     Dosage: UNK
     Route: 048
     Dates: start: 20041001, end: 20050201
  4. REBETOL [Suspect]
     Dosage: UNK
     Route: 048
     Dates: start: 20130620, end: 20130719

REACTIONS (9)
  - Immune thrombocytopenic purpura [Unknown]
  - Aggression [Unknown]
  - Suicidal ideation [Unknown]
  - Hepatic cancer [Unknown]
  - Chills [Unknown]
  - Headache [Recovered/Resolved]
  - Ocular hyperaemia [Unknown]
  - Hepatic neoplasm [Unknown]
  - Drug ineffective [Unknown]
